FAERS Safety Report 10736161 (Version 2)
Quarter: 2015Q1

REPORT INFORMATION
  Report Type: Spontaneous
  Country: JP (occurrence: None)
  Receive Date: 20150121
  Receipt Date: 20150209
  Transmission Date: 20150721
  Serious: Yes (Life-Threatening, Hospitalization)
  Sender: FDA-Public Use
  Company Number: JP2014JPN018804

PATIENT
  Age: 62 Year
  Sex: Male

DRUGS (6)
  1. LAMICTAL [Suspect]
     Active Substance: LAMOTRIGINE
     Indication: EPILEPSY
     Dosage: 100 MG, 1D, ORAL
     Route: 048
     Dates: start: 20141012, end: 20141110
  2. FEBURIC (FEBUXOSTAT) [Suspect]
     Active Substance: FEBUXOSTAT
     Route: 048
  3. TEGRETOL (CARBAMAZEPINE) [Concomitant]
     Route: 048
  4. LAMICTAL [Suspect]
     Active Substance: LAMOTRIGINE
     Indication: CONVULSION PROPHYLAXIS
     Dosage: 100 MG, 1D, ORAL
     Route: 048
     Dates: start: 20141012, end: 20141110
  5. PAXIL [Suspect]
     Active Substance: PAROXETINE HYDROCHLORIDE
     Route: 048
  6. CONTOMIN [Suspect]
     Active Substance: CHLORPROMAZINE
     Route: 048

REACTIONS (6)
  - Drug eruption [None]
  - Dehydration [None]
  - Rhabdomyolysis [None]
  - Renal impairment [None]
  - Generalised erythema [None]
  - Pyrexia [None]

NARRATIVE: CASE EVENT DATE: 20141110
